FAERS Safety Report 10856442 (Version 2)
Quarter: 2016Q1

REPORT INFORMATION
  Report Type: Report from Study
  Country: US (occurrence: US)
  Receive Date: 20150223
  Receipt Date: 20160226
  Transmission Date: 20160525
  Serious: Yes (Hospitalization, Disabling, Other)
  Sender: FDA-Public Use
  Company Number: US-ROCHE-1521027

PATIENT
  Age: 49 Year
  Sex: Female
  Weight: 94.89 kg

DRUGS (51)
  1. XANAX [Concomitant]
     Active Substance: ALPRAZOLAM
     Route: 048
  2. HYOSCYAMINE SULFATE. [Concomitant]
     Active Substance: HYOSCYAMINE SULFATE
     Route: 048
  3. MS CONTIN [Concomitant]
     Active Substance: MORPHINE SULFATE
     Route: 048
  4. LIDOCAIN [Concomitant]
     Active Substance: LIDOCAINE
     Route: 065
  5. HERCEPTIN [Suspect]
     Active Substance: TRASTUZUMAB
     Indication: BREAST CANCER FEMALE
  6. PERJETA [Suspect]
     Active Substance: PERTUZUMAB
     Indication: BONE CANCER
  7. LOMOTIL (UNITED STATES) [Concomitant]
     Dosage: 2.5-0.25 MG
     Route: 048
  8. ARIMIDEX [Concomitant]
     Active Substance: ANASTROZOLE
     Route: 048
     Dates: start: 20121220
  9. LASIX [Concomitant]
     Active Substance: FUROSEMIDE
     Route: 048
  10. TAXOTERE [Concomitant]
     Active Substance: DOCETAXEL
  11. TIZANIDINE. [Concomitant]
     Active Substance: TIZANIDINE
     Dosage: 1-2 NIGHTLY
     Route: 048
  12. ZOFRAN [Concomitant]
     Active Substance: ONDANSETRON HYDROCHLORIDE
     Route: 048
  13. CLARITIN [Concomitant]
     Active Substance: LORATADINE
     Route: 048
  14. VIIBRYD [Concomitant]
     Active Substance: VILAZODONE HYDROCHLORIDE
     Route: 048
  15. FLEXERIL [Concomitant]
     Active Substance: CYCLOBENZAPRINE HYDROCHLORIDE
     Route: 048
  16. LEXAPRO [Concomitant]
     Active Substance: ESCITALOPRAM OXALATE
  17. COMPAZINE [Concomitant]
     Active Substance: PROCHLORPERAZINE MALEATE
  18. PROVIGIL [Suspect]
     Active Substance: MODAFINIL
     Indication: BONE CANCER
  19. IMODIUM [Concomitant]
     Active Substance: LOPERAMIDE HYDROCHLORIDE
     Route: 048
  20. TAXOL [Concomitant]
     Active Substance: PACLITAXEL
  21. FASLODEX [Concomitant]
     Active Substance: FULVESTRANT
  22. VITAMIN B COMPLEX [Concomitant]
     Active Substance: CYANOCOBALAMIN\DEXPANTHENOL\NIACINAMIDE\PYRIDOXINE HYDROCHLORIDE\RIBOFLAVIN 5^-PHOSPHATE SODIUM\THIAMINE HYDROCHLORIDE\VITAMIN B COMPLEX
     Dosage: 1 TABLET BY MOUTH DAILY
     Route: 048
  23. XELODA [Suspect]
     Active Substance: CAPECITABINE
     Indication: BONE CANCER
  24. ATIVAN [Concomitant]
     Active Substance: LORAZEPAM
     Route: 048
  25. WARFARIN [Concomitant]
     Active Substance: WARFARIN
     Route: 048
  26. MIDRIN [Concomitant]
     Active Substance: ACETAMINOPHEN\DICHLORALPHENAZONE\ISOMETHEPTENE
     Dosage: DAILY
     Route: 048
  27. OMEPRAZOLE. [Concomitant]
     Active Substance: OMEPRAZOLE
     Route: 065
  28. OPIUM TINCTURE [Concomitant]
     Active Substance: OPIUM TINCTURE
  29. ZEGERID [Concomitant]
     Active Substance: OMEPRAZOLE\SODIUM BICARBONATE
  30. KADCYLA [Suspect]
     Active Substance: ADO-TRASTUZUMAB EMTANSINE
     Indication: INVASIVE DUCTAL BREAST CARCINOMA
     Route: 042
     Dates: start: 20140624, end: 20141208
  31. HERCEPTIN [Suspect]
     Active Substance: TRASTUZUMAB
     Indication: BREAST CANCER
     Route: 042
     Dates: start: 20110809
  32. PERJETA [Suspect]
     Active Substance: PERTUZUMAB
     Indication: BREAST CANCER METASTATIC
     Route: 042
     Dates: start: 20130104, end: 20140514
  33. COUMADIN [Concomitant]
     Active Substance: WARFARIN SODIUM
     Route: 048
  34. NASONEX [Concomitant]
     Active Substance: MOMETASONE FUROATE
     Dosage: PUFF DALILY
     Route: 065
  35. IBUPROFEN. [Concomitant]
     Active Substance: IBUPROFEN
     Route: 048
  36. WELLBUTRIN [Concomitant]
     Active Substance: BUPROPION HYDROCHLORIDE
     Dosage: 2 TABLETS BY MOUTH IN A.M
     Route: 048
  37. BACLOFEN. [Concomitant]
     Active Substance: BACLOFEN
     Route: 048
  38. ZOMETA [Concomitant]
     Active Substance: ZOLEDRONIC ACID
  39. DILAUDID [Concomitant]
     Active Substance: HYDROMORPHONE HYDROCHLORIDE
     Route: 048
  40. IBUPROFEN. [Concomitant]
     Active Substance: IBUPROFEN
     Route: 048
  41. KLOR-CON [Concomitant]
     Active Substance: POTASSIUM CHLORIDE
     Route: 048
  42. LASIX [Concomitant]
     Active Substance: FUROSEMIDE
     Route: 065
  43. KADCYLA [Suspect]
     Active Substance: ADO-TRASTUZUMAB EMTANSINE
     Indication: BONE CANCER
     Route: 042
     Dates: start: 20141208
  44. KADCYLA [Suspect]
     Active Substance: ADO-TRASTUZUMAB EMTANSINE
     Indication: BONE CANCER
  45. HERCEPTIN [Suspect]
     Active Substance: TRASTUZUMAB
     Indication: BONE CANCER
  46. XELODA [Suspect]
     Active Substance: CAPECITABINE
     Indication: BREAST CANCER
     Route: 048
     Dates: start: 20100208, end: 201005
  47. PROVIGIL [Suspect]
     Active Substance: MODAFINIL
     Indication: BREAST CANCER FEMALE
     Route: 048
  48. IBUPROFEN. [Concomitant]
     Active Substance: IBUPROFEN
     Route: 065
  49. TRAZODONE [Concomitant]
     Active Substance: TRAZODONE HYDROCHLORIDE
     Dosage: NIGHTLY
     Route: 048
  50. DEXAMETHASONE. [Concomitant]
     Active Substance: DEXAMETHASONE
     Route: 065
  51. AMOXICILLIN. [Concomitant]
     Active Substance: AMOXICILLIN
     Route: 065

REACTIONS (35)
  - Palmar-plantar erythrodysaesthesia syndrome [Unknown]
  - Muscle spasms [Recovered/Resolved]
  - Anaemia [Not Recovered/Not Resolved]
  - Pathological fracture [Unknown]
  - Dyspnoea [Unknown]
  - Nausea [Unknown]
  - Dry mouth [Unknown]
  - Increased tendency to bruise [Unknown]
  - Peripheral swelling [Not Recovered/Not Resolved]
  - Dysgeusia [Unknown]
  - Drug hypersensitivity [Recovered/Resolved]
  - Disease progression [Unknown]
  - Pruritus [Unknown]
  - Food intolerance [Not Recovered/Not Resolved]
  - Back pain [Unknown]
  - Nocturia [Unknown]
  - Diarrhoea [Not Recovered/Not Resolved]
  - Malaise [Not Recovered/Not Resolved]
  - Metastases to central nervous system [Unknown]
  - Bone pain [Unknown]
  - Otitis media [Unknown]
  - Depression [Not Recovered/Not Resolved]
  - Epistaxis [Unknown]
  - Pneumonia viral [Unknown]
  - Metastases to liver [Unknown]
  - Cough [Unknown]
  - Abdominal pain [Unknown]
  - Musculoskeletal pain [Unknown]
  - Neuropathy peripheral [Unknown]
  - Fatigue [Not Recovered/Not Resolved]
  - Pain [Recovered/Resolved]
  - Neutropenia [Unknown]
  - Pain [Unknown]
  - Dyspepsia [Recovering/Resolving]
  - Dizziness [Unknown]

NARRATIVE: CASE EVENT DATE: 20100210
